FAERS Safety Report 13554695 (Version 1)
Quarter: 2017Q2

REPORT INFORMATION
  Report Type: Spontaneous
  Country: US (occurrence: US)
  Receive Date: 20170516
  Receipt Date: 20170516
  Transmission Date: 20170830
  Serious: Yes (Hospitalization)
  Sender: FDA-Public Use
  Company Number: None

PATIENT
  Sex: Male

DRUGS (3)
  1. PULMOZYME [Suspect]
     Active Substance: DORNASE ALFA
     Indication: CYSTIC FIBROSIS
     Route: 055
     Dates: start: 20140117
  2. CAYSTON [Concomitant]
     Active Substance: AZTREONAM
  3. KALYDECO [Concomitant]
     Active Substance: IVACAFTOR

REACTIONS (1)
  - Lung transplant [None]

NARRATIVE: CASE EVENT DATE: 2017
